FAERS Safety Report 22103992 (Version 3)
Quarter: 2023Q2

REPORT INFORMATION
  Report Type: Report from Study
  Country: KR (occurrence: KR)
  Receive Date: 20230316
  Receipt Date: 20230413
  Transmission Date: 20230722
  Serious: Yes (Hospitalization)
  Sender: FDA-Public Use
  Company Number: KR-BEIGENE AUS PTY LTD-BGN-2023-001728

PATIENT
  Age: 70 Year
  Sex: Male
  Weight: 60.6 kg

DRUGS (5)
  1. ZANIDATAMAB [Suspect]
     Active Substance: ZANIDATAMAB
     Indication: Adenocarcinoma gastric
     Dosage: 1800 MG, Q3W
     Route: 042
     Dates: start: 20221209
  2. TISLELIZUMAB [Suspect]
     Active Substance: TISLELIZUMAB
     Indication: Adenocarcinoma gastric
     Dosage: 200 MG, Q3W
     Route: 042
     Dates: start: 20221209
  3. CAPECITABINE [Suspect]
     Active Substance: CAPECITABINE
     Indication: Adenocarcinoma gastric
     Dosage: 1000 MILLIGRAM/SQ. METER, Q3WK
     Route: 048
     Dates: start: 20221209
  4. LOSARTAN POTASSIUM [Concomitant]
     Active Substance: LOSARTAN POTASSIUM
     Indication: Hypertension
     Dosage: 50 MG, QD
     Route: 065
     Dates: start: 2015
  5. REBAMIPIDE [Concomitant]
     Active Substance: REBAMIPIDE
     Indication: Haemorrhage prophylaxis
     Dosage: 100 MG, TID
     Route: 065
     Dates: start: 20221123

REACTIONS (1)
  - Pneumonitis [Recovered/Resolved]

NARRATIVE: CASE EVENT DATE: 20230307
